FAERS Safety Report 21946264 (Version 1)
Quarter: 2023Q1

REPORT INFORMATION
  Report Type: Spontaneous
  Country: CA (occurrence: CA)
  Receive Date: 20230202
  Receipt Date: 20230202
  Transmission Date: 20230418
  Serious: Yes (Death, Hospitalization)
  Sender: FDA-Public Use
  Company Number: CA-002147023-NVSC2023CA023146

PATIENT
  Age: 60 Year
  Sex: Male
  Weight: 72 kg

DRUGS (23)
  1. CYCLOSPORINE [Suspect]
     Active Substance: CYCLOSPORINE
     Indication: Prophylaxis against graft versus host disease
     Dosage: 425 MG, Q12H
     Route: 065
  2. CYCLOSPORINE [Suspect]
     Active Substance: CYCLOSPORINE
     Dosage: 150 MG, Q12H
     Route: 065
  3. CYCLOSPORINE [Suspect]
     Active Substance: CYCLOSPORINE
     Dosage: 175 MG, Q12H
     Route: 065
  4. CYCLOSPORINE [Suspect]
     Active Substance: CYCLOSPORINE
     Dosage: 150 MG, Q12H
     Route: 065
  5. CYCLOSPORINE [Suspect]
     Active Substance: CYCLOSPORINE
     Dosage: 100 MG, Q12H
     Route: 065
  6. CYCLOSPORINE [Suspect]
     Active Substance: CYCLOSPORINE
     Dosage: 125 MG, Q12H
     Route: 065
  7. CYCLOSPORINE [Suspect]
     Active Substance: CYCLOSPORINE
     Dosage: 25 MG, Q12H
     Route: 065
  8. CYCLOSPORINE [Suspect]
     Active Substance: CYCLOSPORINE
     Dosage: 100 MG, Q12H
     Route: 065
  9. CYCLOSPORINE [Suspect]
     Active Substance: CYCLOSPORINE
     Dosage: 50 MG, Q12H
     Route: 065
  10. CYCLOSPORINE [Suspect]
     Active Substance: CYCLOSPORINE
     Dosage: 125 MG, Q12H
     Route: 065
  11. CYCLOSPORINE [Suspect]
     Active Substance: CYCLOSPORINE
     Dosage: 25 MG, Q12H
     Route: 065
  12. CYCLOSPORINE [Suspect]
     Active Substance: CYCLOSPORINE
     Dosage: 300 MG, Q12H
     Route: 065
  13. CYCLOSPORINE [Suspect]
     Active Substance: CYCLOSPORINE
     Dosage: 75 MG, Q12H
     Route: 065
  14. CYCLOSPORINE [Suspect]
     Active Substance: CYCLOSPORINE
     Dosage: 250 MG, Q12H
     Route: 065
  15. CYCLOSPORINE [Suspect]
     Active Substance: CYCLOSPORINE
     Dosage: 150 MG, Q12H
     Route: 065
  16. CYCLOSPORINE [Suspect]
     Active Substance: CYCLOSPORINE
     Dosage: 300 MG, Q12H
     Route: 065
  17. METHOTREXATE [Suspect]
     Active Substance: METHOTREXATE
     Indication: Prophylaxis against graft versus host disease
     Dosage: 27 MG (TOTAL)
     Route: 065
  18. METHOTREXATE [Suspect]
     Active Substance: METHOTREXATE
     Dosage: 18 MG (TOTAL)
     Route: 065
  19. METHOTREXATE [Suspect]
     Active Substance: METHOTREXATE
     Dosage: 18 MG (TOTAL)
     Route: 065
  20. METHOTREXATE [Suspect]
     Active Substance: METHOTREXATE
     Dosage: 18 MG (TOTAL)
     Route: 065
  21. THYMOGLOBULIN [Suspect]
     Active Substance: LAPINE T-LYMPHOCYTE IMMUNE GLOBULIN
     Indication: Prophylaxis against graft versus host disease
     Dosage: 160 MG
     Route: 065
  22. THYMOGLOBULIN [Suspect]
     Active Substance: LAPINE T-LYMPHOCYTE IMMUNE GLOBULIN
     Dosage: 160 MG
     Route: 065
  23. THYMOGLOBULIN [Suspect]
     Active Substance: LAPINE T-LYMPHOCYTE IMMUNE GLOBULIN
     Dosage: 40 MG
     Route: 042

REACTIONS (1)
  - Acute myeloid leukaemia recurrent [Fatal]
